FAERS Safety Report 23963100 (Version 1)
Quarter: 2024Q2

REPORT INFORMATION
  Report Type: Spontaneous
  Country: CN (occurrence: CN)
  Receive Date: 20240611
  Receipt Date: 20240611
  Transmission Date: 20240716
  Serious: Yes (Other)
  Sender: FDA-Public Use
  Company Number: CN-002147023-NVSC2024CN122185

PATIENT
  Age: 54 Year
  Sex: Male
  Weight: 67 kg

DRUGS (2)
  1. TRILEPTAL [Suspect]
     Active Substance: OXCARBAZEPINE
     Indication: Mood swings
     Dosage: UNKINCREASED FROM 0.15G BID TO 0.45G BID
     Route: 065
     Dates: start: 20240509, end: 20240605
  2. TRILEPTAL [Suspect]
     Active Substance: OXCARBAZEPINE
     Dosage: 0.600 G, BID
     Route: 048
     Dates: start: 20240605, end: 20240607

REACTIONS (1)
  - Hyperuricaemia [Unknown]

NARRATIVE: CASE EVENT DATE: 20240607
